FAERS Safety Report 7937016-4 (Version None)
Quarter: 2011Q4

REPORT INFORMATION
  Report Type: 
  Country: None (occurrence: None)
  Receive Date: 20111123
  Receipt Date: 20111114
  Transmission Date: 20120403
  Serious: Yes (Hospitalization)
  Sender: FDA-Public Use
  Company Number: IE-MEDIMMUNE-MEDI-0013953

PATIENT
  Sex: Male
  Weight: 2.92 kg

DRUGS (3)
  1. KAPSOVIT [Concomitant]
  2. IRON [Concomitant]
  3. SYNAGIS [Suspect]
     Route: 030
     Dates: start: 20111010, end: 20111010

REACTIONS (1)
  - VIRAL INFECTION [None]
